FAERS Safety Report 7721094-1 (Version None)
Quarter: 2011Q3

REPORT INFORMATION
  Report Type: 
  Country: None (occurrence: None)
  Receive Date: 20110830
  Receipt Date: 20110830
  Transmission Date: 20111222
  Serious: No
  Sender: FDA-Public Use
  Company Number: None

PATIENT
  Sex: Male

DRUGS (1)
  1. PROTONIX [Suspect]
     Indication: BARRETT'S OESOPHAGUS
     Dosage: PROTONIX 40MG QD PO
     Route: 048
     Dates: start: 20090101

REACTIONS (4)
  - CHEST PAIN [None]
  - OROPHARYNGEAL PAIN [None]
  - DIZZINESS [None]
  - DRUG INTOLERANCE [None]
